FAERS Safety Report 13541535 (Version 3)
Quarter: 2017Q3

REPORT INFORMATION
  Report Type: Report from Study
  Country: US (occurrence: US)
  Receive Date: 20170512
  Receipt Date: 20170824
  Transmission Date: 20171127
  Serious: Yes (Death, Hospitalization)
  Sender: FDA-Public Use
  Company Number: US-JNJFOC-20170511877

PATIENT
  Sex: Male

DRUGS (1)
  1. IMBRUVICA [Suspect]
     Active Substance: IBRUTINIB
     Indication: CHRONIC LYMPHOCYTIC LEUKAEMIA
     Route: 048
     Dates: start: 20170406

REACTIONS (6)
  - Death [Fatal]
  - Blood count abnormal [Unknown]
  - Drug ineffective [Unknown]
  - Epistaxis [Unknown]
  - Fall [Unknown]
  - Head injury [Unknown]
